FAERS Safety Report 9710545 (Version 1)
Quarter: 2013Q4

REPORT INFORMATION
  Report Type: Spontaneous
  Country: US (occurrence: US)
  Receive Date: 20131126
  Receipt Date: 20131126
  Transmission Date: 20140711
  Serious: No
  Sender: FDA-Public Use
  Company Number: US-BRISTOL-MYERS SQUIBB COMPANY-18876284

PATIENT
  Age: 60 Year
  Sex: Male

DRUGS (3)
  1. BYETTA PEN DISPOSABLE [Suspect]
     Indication: DIABETES MELLITUS
     Dosage: 10MCG PER 0.04MLS SOLUTION
     Route: 058
  2. METFORMIN [Concomitant]
     Route: 048
  3. GLIPIZIDE [Concomitant]
     Route: 048

REACTIONS (1)
  - Circumstance or information capable of leading to medication error [Unknown]
